FAERS Safety Report 10059915 (Version 4)
Quarter: 2014Q3

REPORT INFORMATION
  Report Type: Spontaneous
  Country: US (occurrence: US)
  Receive Date: 20140404
  Receipt Date: 20140717
  Transmission Date: 20150326
  Serious: Yes (Other)
  Sender: FDA-Public Use
  Company Number: US-GLAXOSMITHKLINE-A1068053A

PATIENT
  Age: 79 Year
  Sex: Male
  Weight: 70.9 kg

DRUGS (15)
  1. COLACE [Concomitant]
     Active Substance: DOCUSATE SODIUM
  2. SODIUM POLYSTYRENE SULFONATE. [Concomitant]
     Active Substance: SODIUM POLYSTYRENE SULFONATE
  3. VICODIN [Concomitant]
     Active Substance: ACETAMINOPHEN\HYDROCODONE BITARTRATE
  4. CARDIZEM CD [Concomitant]
     Active Substance: DILTIAZEM HYDROCHLORIDE
  5. COMBIVENT RESPIMAT [Concomitant]
     Active Substance: ALBUTEROL SULFATE\IPRATROPIUM BROMIDE
  6. XANAX [Concomitant]
     Active Substance: ALPRAZOLAM
  7. OXYGEN. [Concomitant]
     Active Substance: OXYGEN
     Indication: PARTIAL LUNG RESECTION
  8. ARANESP [Concomitant]
     Active Substance: DARBEPOETIN ALFA
  9. ASPIRIN EC [Concomitant]
     Active Substance: ASPIRIN
  10. ADVAIR HFA [Suspect]
     Active Substance: FLUTICASONE PROPIONATE\SALMETEROL XINAFOATE
     Indication: PARTIAL LUNG RESECTION
     Route: 065
     Dates: start: 20070401
  11. ATORVASTATIN CALCIUM. [Concomitant]
     Active Substance: ATORVASTATIN CALCIUM
  12. METOPROLOL [Concomitant]
     Active Substance: METOPROLOL
  13. MULTIVITAMINS [Concomitant]
     Active Substance: VITAMINS
  14. FENTANYL. [Concomitant]
     Active Substance: FENTANYL
  15. IRON [Concomitant]
     Active Substance: IRON

REACTIONS (9)
  - Nasal congestion [Unknown]
  - Cardiac failure [Unknown]
  - Fatigue [Unknown]
  - Anaemia [Unknown]
  - Rhinorrhoea [Unknown]
  - Dyspnoea [Unknown]
  - Renal cancer [Not Recovered/Not Resolved]
  - Breath sounds abnormal [Unknown]
  - Wheezing [Unknown]
